FAERS Safety Report 6941372-3 (Version None)
Quarter: 2010Q3

REPORT INFORMATION
  Report Type: 
  Country: None (occurrence: None)
  Receive Date: 20100824
  Receipt Date: 20100824
  Transmission Date: 20110219
  Serious: No
  Sender: FDA-Public Use
  Company Number: None

PATIENT

DRUGS (2)
  1. EXCEDRINE MIGRAINE [Suspect]
     Dates: start: 20100823, end: 20100823
  2. EXTRA STRENGTH EXCEDRINE [Suspect]

REACTIONS (2)
  - DRUG LABEL CONFUSION [None]
  - MEDICATION ERROR [None]
